APPROVED DRUG PRODUCT: AKTOB
Active Ingredient: TOBRAMYCIN
Strength: 0.3%
Dosage Form/Route: SOLUTION/DROPS;OPHTHALMIC
Application: A064096 | Product #001
Applicant: EPIC PHARMA LLC
Approved: Jan 31, 1996 | RLD: No | RS: No | Type: DISCN